FAERS Safety Report 25233369 (Version 1)
Quarter: 2025Q2

REPORT INFORMATION
  Report Type: Report from Study
  Country: US (occurrence: US)
  Receive Date: 20250424
  Receipt Date: 20250424
  Transmission Date: 20250717
  Serious: Yes (Other)
  Sender: AMGEN
  Company Number: US-AMGEN-USASL2025077261

PATIENT
  Age: 76 Year
  Sex: Female

DRUGS (1)
  1. REPATHA [Suspect]
     Active Substance: EVOLOCUMAB
     Indication: Blood cholesterol abnormal
     Dosage: STRENGTH: 140MG, Q2WK
     Route: 065
     Dates: start: 20250410

REACTIONS (13)
  - Choking [Unknown]
  - Cough [Unknown]
  - Injection site bruising [Unknown]
  - Injection site warmth [Unknown]
  - Bronchial disorder [Unknown]
  - Dyspnoea [Unknown]
  - Dysphonia [Unknown]
  - Throat irritation [Unknown]
  - Injection site pain [Unknown]
  - Mydriasis [Unknown]
  - Injection site swelling [Unknown]
  - Dry throat [Unknown]
  - Visual impairment [Unknown]

NARRATIVE: CASE EVENT DATE: 20250401
